FAERS Safety Report 10196508 (Version 1)
Quarter: 2014Q2

REPORT INFORMATION
  Report Type: Spontaneous
  Country: JP (occurrence: JP)
  Receive Date: 20140527
  Receipt Date: 20140527
  Transmission Date: 20141212
  Serious: Yes (Other)
  Sender: FDA-Public Use
  Company Number: JP-PFIZER INC-2014140997

PATIENT
  Age: 60 Year
  Sex: Male

DRUGS (3)
  1. METHYLPREDNISOLONE SODIUM SUCCINATE [Suspect]
     Indication: ACUTE HEPATITIS B
     Dosage: UNK
  2. PREDNISOLONE [Suspect]
     Indication: ACUTE HEPATITIS B
     Dosage: UNK
  3. ENTECAVIR [Concomitant]
     Indication: VIRAL HEPATITIS CARRIER
     Dosage: UNK
     Route: 048
     Dates: start: 200706

REACTIONS (3)
  - Bronchopulmonary aspergillosis [Recovered/Resolved]
  - Aspergillus infection [Recovered/Resolved]
  - Muscle abscess [Recovered/Resolved]
